FAERS Safety Report 7510241-2 (Version None)
Quarter: 2011Q2

REPORT INFORMATION
  Report Type: 
  Country: None (occurrence: None)
  Receive Date: 20110527
  Receipt Date: 20110518
  Transmission Date: 20111010
  Serious: Yes (Other)
  Sender: FDA-Public Use
  Company Number: PHHY2011IT42694

PATIENT
  Sex: Female

DRUGS (1)
  1. CARBOPLATIN [Suspect]

REACTIONS (5)
  - ASTHENIA [None]
  - HYPOSIDERAEMIA [None]
  - CONSTIPATION [None]
  - NEUTROPENIA [None]
  - NAUSEA [None]
